FAERS Safety Report 7103584-8 (Version None)
Quarter: 2010Q4

REPORT INFORMATION
  Report Type: 
  Country: None (occurrence: None)
  Receive Date: 20101115
  Receipt Date: 20101103
  Transmission Date: 20110411
  Serious: Yes (Hospitalization)
  Sender: FDA-Public Use
  Company Number: GXKR2010ES12406

PATIENT
  Age: 73 Year
  Sex: Female

DRUGS (1)
  1. METFORMIN HCL [Suspect]
     Dosage: 850 MG, TID
     Route: 065

REACTIONS (20)
  - ABDOMINAL PAIN UPPER [None]
  - ANAEMIA [None]
  - ARRHYTHMIA [None]
  - ASTHENIA [None]
  - CONTINUOUS HAEMODIAFILTRATION [None]
  - DECREASED APPETITE [None]
  - DEHYDRATION [None]
  - DYSPNOEA [None]
  - HEPATOTOXICITY [None]
  - LACTIC ACIDOSIS [None]
  - LEUKOCYTOSIS [None]
  - NEUTROPHILIA [None]
  - PAIN [None]
  - PLEURAL EFFUSION [None]
  - POLYDIPSIA [None]
  - POLYURIA [None]
  - RENAL FAILURE ACUTE [None]
  - THROMBOCYTOPENIA [None]
  - TRANSFERRIN INCREASED [None]
  - VOMITING [None]
